FAERS Safety Report 8543013-0 (Version None)
Quarter: 2012Q3

REPORT INFORMATION
  Report Type: 
  Country: None (occurrence: None)
  Receive Date: 20120727
  Receipt Date: 20120717
  Transmission Date: 20120928
  Serious: Yes (Other)
  Sender: FDA-Public Use
  Company Number: CA-JNJFOC-20120709858

PATIENT
  Sex: Male
  Weight: 69.2 kg

DRUGS (4)
  1. REMICADE [Suspect]
     Indication: COLITIS ULCERATIVE
     Route: 042
     Dates: start: 20120704
  2. PURINETHOL [Concomitant]
     Route: 065
  3. MESALAMINE [Concomitant]
     Route: 065
  4. CALCIUM [Concomitant]
     Route: 065

REACTIONS (2)
  - DYSPNOEA EXERTIONAL [None]
  - PALPITATIONS [None]
